FAERS Safety Report 11181372 (Version 3)
Quarter: 2015Q2

REPORT INFORMATION
  Report Type: Spontaneous
  Country: US (occurrence: US)
  Receive Date: 20150611
  Receipt Date: 20150629
  Transmission Date: 20150821
  Serious: Yes (Other)
  Sender: FDA-Public Use
  Company Number: US-PFIZER INC-2015192383

PATIENT
  Age: 58 Year
  Sex: Female
  Weight: 109 kg

DRUGS (4)
  1. LYRICA [Suspect]
     Active Substance: PREGABALIN
     Indication: NERVE INJURY
  2. LYRICA [Suspect]
     Active Substance: PREGABALIN
     Indication: FIBROMYALGIA
     Dosage: 75 MG, DAILY
  3. LYRICA [Suspect]
     Active Substance: PREGABALIN
     Indication: DYSTONIA
  4. LYRICA [Suspect]
     Active Substance: PREGABALIN
     Indication: NEUROPATHY PERIPHERAL
     Dosage: 1 DF, 1X/DAY (ONE A DAY)

REACTIONS (17)
  - Anxiety [Unknown]
  - Heart rate increased [Recovered/Resolved]
  - Myalgia [Unknown]
  - Seizure [Recovered/Resolved]
  - Mental impairment [Recovered/Resolved]
  - Drug withdrawal syndrome [Recovered/Resolved]
  - Swelling [Unknown]
  - Back injury [Recovered/Resolved]
  - Headache [Recovered/Resolved]
  - Movement disorder [Recovered/Resolved]
  - Emotional disorder [Recovered/Resolved]
  - Pancreatitis [Unknown]
  - Anger [Unknown]
  - General physical health deterioration [Recovered/Resolved]
  - Suicidal ideation [Recovered/Resolved]
  - Panic attack [Unknown]
  - Aggression [Unknown]
